FAERS Safety Report 22354434 (Version 1)
Quarter: 2023Q2

REPORT INFORMATION
  Report Type: Spontaneous
  Country: US (occurrence: None)
  Receive Date: 20230522
  Receipt Date: 20230522
  Transmission Date: 20230722
  Serious: Yes (Hospitalization, Disabling, Other)
  Sender: FDA-Public Use
  Company Number: None

PATIENT
  Age: 43 Year
  Sex: Female
  Weight: 74.7 kg

DRUGS (2)
  1. LISINOPRIL [Suspect]
     Active Substance: LISINOPRIL
     Indication: Hypertension
     Dosage: OTHER QUANTITY : 30 TABLET(S);?FREQUENCY : DAILY;?
     Route: 048
     Dates: start: 20080611, end: 20080722
  2. Spironolactone Losartan with potassium Clonidine 0.2 Labetalol [Concomitant]

REACTIONS (7)
  - Breast neoplasm [None]
  - Nephrolithiasis [None]
  - Uterine leiomyoma [None]
  - Uterine haemorrhage [None]
  - Glaucoma [None]
  - Dementia [None]
  - Blood pressure increased [None]

NARRATIVE: CASE EVENT DATE: 20080611
